FAERS Safety Report 15576673 (Version 4)
Quarter: 2019Q4

REPORT INFORMATION
  Report Type: Spontaneous
  Country: US (occurrence: US)
  Receive Date: 20181101
  Receipt Date: 20191108
  Transmission Date: 20200122
  Serious: No
  Sender: FDA-Public Use
  Company Number: US-PFIZER INC-2018447736

PATIENT
  Age: 69 Year
  Sex: Female

DRUGS (1)
  1. XELJANZ XR [Suspect]
     Active Substance: TOFACITINIB CITRATE
     Indication: BREAST CANCER FEMALE
     Dosage: 11 MG, UNK

REACTIONS (4)
  - Product use in unapproved indication [Unknown]
  - Malaise [Unknown]
  - Gait inability [Unknown]
  - Off label use [Unknown]
